FAERS Safety Report 4274214-8 (Version None)
Quarter: 2004Q1

REPORT INFORMATION
  Report Type: 
  Country: None (occurrence: None)
  Receive Date: 20040115
  Receipt Date: 20040105
  Transmission Date: 20041129
  Serious: Yes (Life-Threatening)
  Sender: FDA-Public Use
  Company Number: 2004193342FR

PATIENT
  Age: 39 Year
  Sex: Female
  Weight: 47 kg

DRUGS (4)
  1. SOLU-MEDROL [Suspect]
     Indication: MULTIPLE SCLEROSIS
     Dosage: IV
     Route: 042
     Dates: start: 20030415, end: 20031030
  2. AVONEX [Suspect]
     Indication: MULTIPLE SCLEROSIS
     Dosage: INTRAMUSCULAR
     Route: 030
     Dates: start: 19990101, end: 20031001
  3. COPAXONE [Suspect]
     Indication: MULTIPLE SCLEROSIS
     Dosage: SUBCUTANEOUS
     Route: 058
     Dates: start: 20031101, end: 20031103
  4. PREDNISONE [Concomitant]

REACTIONS (8)
  - ADRENAL INSUFFICIENCY [None]
  - BLOOD PRESSURE DECREASED [None]
  - DRUG INTOLERANCE [None]
  - MULTIPLE SCLEROSIS [None]
  - POLYDIPSIA [None]
  - POLYURIA [None]
  - URINE OSMOLARITY DECREASED [None]
  - WEIGHT DECREASED [None]
